FAERS Safety Report 5803066-7 (Version None)
Quarter: 2008Q3

REPORT INFORMATION
  Report Type: 
  Country: None (occurrence: None)
  Receive Date: 20080703
  Receipt Date: 20080623
  Transmission Date: 20090109
  Serious: No
  Sender: FDA-Public Use
  Company Number: 001453

PATIENT
  Age: 16 Year
  Sex: Male

DRUGS (8)
  1. BUSULFEX [Suspect]
     Indication: STEM CELL TRANSPLANT
     Dosage: 20.1 ML; INTRAVENOUS; 26.8 ML, DAILY DOSE; INTRAVENOUS; 6.7 ML, DAILY DOSE; INTRAVENOUS
     Route: 042
     Dates: start: 20080210, end: 20080210
  2. BUSULFEX [Suspect]
     Indication: STEM CELL TRANSPLANT
     Dosage: 20.1 ML; INTRAVENOUS; 26.8 ML, DAILY DOSE; INTRAVENOUS; 6.7 ML, DAILY DOSE; INTRAVENOUS
     Route: 042
     Dates: start: 20080211, end: 20080211
  3. BUSULFEX [Suspect]
     Indication: STEM CELL TRANSPLANT
     Dosage: 20.1 ML; INTRAVENOUS; 26.8 ML, DAILY DOSE; INTRAVENOUS; 6.7 ML, DAILY DOSE; INTRAVENOUS
     Route: 042
     Dates: start: 20080212, end: 20080212
  4. FLUDARABINE PHOSPHATE [Concomitant]
  5. PHENYTOIN [Concomitant]
  6. NEUPOGEN [Concomitant]
  7. METHOTREXATE [Concomitant]
  8. TACROLIMUS [Concomitant]

REACTIONS (8)
  - ANOREXIA [None]
  - BLOOD LACTATE DEHYDROGENASE INCREASED [None]
  - DIARRHOEA [None]
  - HEPATIC ENZYME INCREASED [None]
  - MALAISE [None]
  - NAUSEA [None]
  - SEPSIS [None]
  - VOMITING [None]
